FAERS Safety Report 13827044 (Version 1)
Quarter: 2017Q3

REPORT INFORMATION
  Report Type: Spontaneous
  Country: US (occurrence: US)
  Receive Date: 20170802
  Receipt Date: 20170802
  Transmission Date: 20171127
  Serious: No
  Sender: FDA-Public Use
  Company Number: US-ROCHE-658945

PATIENT
  Age: 90 Year
  Sex: Female

DRUGS (7)
  1. CALCIUM [Concomitant]
     Active Substance: CALCIUM
     Route: 065
  2. CORTISONE [Concomitant]
     Active Substance: CORTISONE\HYDROCORTISONE
     Dosage: FORM: INJECTION
     Route: 065
  3. THYROID [Concomitant]
     Active Substance: LEVOTHYROXINE\LIOTHYRONINE
     Route: 065
  4. SIMVASTATIN. [Concomitant]
     Active Substance: SIMVASTATIN
     Dosage: DRUG REPORTED: GENERIC ZOCOR
     Route: 065
  5. BONIVA [Suspect]
     Active Substance: IBANDRONATE SODIUM
     Indication: PRODUCT USED FOR UNKNOWN INDICATION
     Route: 048
  6. VITAMIN [Concomitant]
     Active Substance: VITAMINS
     Route: 065
  7. DETROL [Concomitant]
     Active Substance: TOLTERODINE TARTRATE
     Route: 065

REACTIONS (5)
  - Joint swelling [Unknown]
  - Bursitis [Unknown]
  - Rotator cuff syndrome [Unknown]
  - Arthritis [Unknown]
  - Peripheral swelling [Unknown]
